FAERS Safety Report 9785489 (Version 1)
Quarter: 2013Q4

REPORT INFORMATION
  Report Type: Spontaneous
  Country: None (occurrence: None)
  Receive Date: 20131223
  Receipt Date: 20131223
  Transmission Date: 20140711
  Serious: Yes (Other)
  Sender: FDA-Public Use
  Company Number: EUS02013-00727

PATIENT
  Age: 10 Year
  Sex: Male

DRUGS (4)
  1. ASPARAGINASE [Suspect]
     Indication: B PRECURSOR TYPE ACUTE LEUKAEMIA
     Dosage: ( 10000U/M2 WEEKLY X 4 WEEKS)
  2. DEXAMETHASONE ( DEXAMETHASONE) (DEXAMETHASONE) [Concomitant]
  3. VINCRISTINE ( VINCRISTINE) ( VINCRISTINE) [Concomitant]
  4. ADRIAMYCIN ( DOXORUBICIN) ( DOXORUBICIN) [Concomitant]

REACTIONS (1)
  - Pancreatitis acute [None]
